FAERS Safety Report 21852512 (Version 1)
Quarter: 2023Q1

REPORT INFORMATION
  Report Type: Spontaneous
  Country: DE (occurrence: DE)
  Receive Date: 20230112
  Receipt Date: 20230112
  Transmission Date: 20230417
  Serious: Yes (Other)
  Sender: FDA-Public Use
  Company Number: DE-BAXTER-2023BAX010076

PATIENT
  Age: 57 Year
  Sex: Female

DRUGS (6)
  1. CYCLOPHOSPHAMIDE [Suspect]
     Active Substance: CYCLOPHOSPHAMIDE
     Indication: Product used for unknown indication
     Dosage: 600 MG/M2, ROUTE: INFUSION
     Route: 050
     Dates: start: 20221101, end: 20221101
  2. CYCLOPHOSPHAMIDE [Suspect]
     Active Substance: CYCLOPHOSPHAMIDE
     Dosage: 600 MG/M2, ROUTE: INFUSION
     Route: 050
     Dates: start: 20221115, end: 20221115
  3. CYCLOPHOSPHAMIDE [Suspect]
     Active Substance: CYCLOPHOSPHAMIDE
     Dosage: 600 MG/M2, ROUTE: INFUSION
     Route: 050
     Dates: start: 20221129, end: 20221129
  4. MESNA [Suspect]
     Active Substance: MESNA
     Indication: Product used for unknown indication
     Dosage: AT 11:05, 400 MG
     Route: 040
     Dates: start: 20221101
  5. MESNA [Suspect]
     Active Substance: MESNA
     Dosage: AT 09:35, 400 MG
     Route: 040
     Dates: start: 20221115
  6. MESNA [Suspect]
     Active Substance: MESNA
     Dosage: AT 10:08, 400 MG
     Route: 040
     Dates: start: 20221129

REACTIONS (13)
  - Febrile neutropenia [Unknown]
  - Dry mouth [Recovered/Resolved]
  - Nasal dryness [Recovered/Resolved]
  - Dry mouth [Recovered/Resolved]
  - Nasal dryness [Recovered/Resolved]
  - Dry mouth [Recovered/Resolved]
  - Nasal dryness [Recovered/Resolved]
  - Dizziness [Recovered/Resolved]
  - Dizziness [Recovered/Resolved]
  - Dizziness [Recovered/Resolved]
  - Headache [Recovered/Resolved]
  - Headache [Recovered/Resolved]
  - Headache [Recovered/Resolved]

NARRATIVE: CASE EVENT DATE: 20221101
